FAERS Safety Report 15080342 (Version 1)
Quarter: 2018Q2

REPORT INFORMATION
  Report Type: Spontaneous
  Country: HU (occurrence: HU)
  Receive Date: 20180628
  Receipt Date: 20180628
  Transmission Date: 20180711
  Serious: Yes (Hospitalization, Other)
  Sender: FDA-Public Use
  Company Number: PHHY2018HU022296

PATIENT
  Sex: Female

DRUGS (1)
  1. LEVOFLOXACIN SANDOZ [Suspect]
     Active Substance: LEVOFLOXACIN
     Indication: PRODUCT USED FOR UNKNOWN INDICATION
     Dosage: UNK 5 TIMES (X)
     Route: 065

REACTIONS (5)
  - Throat tightness [Unknown]
  - Tendonitis [Unknown]
  - Dyspnoea [Unknown]
  - Reaction to excipient [Not Recovered/Not Resolved]
  - Cataract [Unknown]
